FAERS Safety Report 7109142-3 (Version None)
Quarter: 2010Q4

REPORT INFORMATION
  Report Type: 
  Country: None (occurrence: None)
  Receive Date: 20101117
  Receipt Date: 20101115
  Transmission Date: 20110411
  Serious: Yes (Hospitalization, Other)
  Sender: FDA-Public Use
  Company Number: VE-PFIZER INC-2010149361

PATIENT
  Age: 34 Year
  Sex: Female

DRUGS (1)
  1. ZOLOFT [Suspect]
     Indication: DEPRESSION
     Dosage: 50 MG, 1X/DAY
     Route: 048
     Dates: start: 20100805, end: 20100826

REACTIONS (5)
  - DIZZINESS [None]
  - GASTRIC DISORDER [None]
  - NAUSEA [None]
  - TACHYCARDIA [None]
  - TREMOR [None]
